FAERS Safety Report 11197155 (Version 1)
Quarter: 2015Q2

REPORT INFORMATION
  Report Type: Spontaneous
  Country: US (occurrence: US)
  Receive Date: 20150617
  Receipt Date: 20150617
  Transmission Date: 20150821
  Serious: No
  Sender: FDA-Public Use
  Company Number: US-SA-2015SA076666

PATIENT
  Age: 27 Year
  Sex: Female
  Weight: 53.1 kg

DRUGS (5)
  1. CEREZYME [Suspect]
     Active Substance: IMIGLUCERASE
     Indication: LIPIDOSIS
     Route: 042
     Dates: start: 19970101
  2. NORMAL SALINE [Concomitant]
     Active Substance: SODIUM CHLORIDE
     Dosage: 0.9% DILU/FLUSH
     Route: 042
     Dates: start: 20150510
  3. WATER FOR INJECTION [Concomitant]
     Active Substance: WATER
     Dosage: 50 ML RECON UD
     Dates: start: 20150510
  4. SODIUM CHLORIDE. [Concomitant]
     Active Substance: SODIUM CHLORIDE
     Dosage: 0.9% FLUSH
     Route: 042
     Dates: start: 20150510
  5. EPIPEN [Concomitant]
     Active Substance: EPINEPHRINE
     Dosage: PRN ANA, EPI-PEN AUTOINJECTOR
     Route: 030
     Dates: start: 20150510

REACTIONS (1)
  - Exposure during pregnancy [Unknown]
